FAERS Safety Report 4282034-3 (Version None)
Quarter: 2004Q1

REPORT INFORMATION
  Report Type: 
  Country: None (occurrence: None)
  Receive Date: 20040128
  Receipt Date: 20040116
  Transmission Date: 20041129
  Serious: Yes (Death)
  Sender: FDA-Public Use
  Company Number: 103824ISR

PATIENT
  Sex: Female

DRUGS (11)
  1. CISPLATIN [Suspect]
     Indication: GASTRIC CANCER
     Dosage: 50 MG/M2
     Dates: end: 20040109
  2. FLUOROURACIL [Suspect]
     Indication: GASTRIC CANCER
     Dosage: 2000 MG/M2
     Dates: end: 20040109
  3. FOLINIC ACID [Suspect]
     Indication: GASTRIC CANCER
     Dosage: 500 MG/M2
     Dates: end: 20040109
  4. ONDANSETRON [Concomitant]
  5. FUROSEMIDE [Concomitant]
  6. POTASSIUM CANRENOATE [Concomitant]
  7. THIAMIN [Concomitant]
  8. PYRIDOXINE [Concomitant]
  9. ESOMEPRAZOLE [Concomitant]
  10. MULTIVITAMINES [Concomitant]
  11. LACTULOSE [Concomitant]

REACTIONS (2)
  - ANURIA [None]
  - RENAL FAILURE [None]
